FAERS Safety Report 21924575 (Version 4)
Quarter: 2024Q4

REPORT INFORMATION
  Report Type: Report from Study
  Country: US (occurrence: US)
  Receive Date: 20230130
  Receipt Date: 20241118
  Transmission Date: 20250114
  Serious: No
  Sender: NOVARTIS
  Company Number: US-002147023-NVSC2023US019865

PATIENT

DRUGS (1)
  1. COSENTYX [Suspect]
     Active Substance: SECUKINUMAB
     Indication: Psoriatic arthropathy
     Dosage: UNK (INJECTION NOS)
     Route: 050
     Dates: start: 202301

REACTIONS (3)
  - Chest discomfort [Recovered/Resolved]
  - Injection site reaction [Recovered/Resolved]
  - Diarrhoea [Recovered/Resolved]
